FAERS Safety Report 7803504-4 (Version None)
Quarter: 2011Q4

REPORT INFORMATION
  Report Type: 
  Country: None (occurrence: None)
  Receive Date: 20111007
  Receipt Date: 20110928
  Transmission Date: 20120403
  Serious: Yes (Other)
  Sender: FDA-Public Use
  Company Number: US-ASTRAZENECA-2011SE58783

PATIENT
  Age: 82 Year
  Sex: Male

DRUGS (1)
  1. NEXIUM [Suspect]
     Route: 048

REACTIONS (6)
  - BARRETT'S OESOPHAGUS [None]
  - MALIGNANT MELANOMA [None]
  - LYMPHOMA [None]
  - RECURRENT CANCER [None]
  - RECTAL POLYP [None]
  - RECTAL CANCER [None]
